FAERS Safety Report 7542888-1 (Version None)
Quarter: 2011Q2

REPORT INFORMATION
  Report Type: 
  Country: None (occurrence: None)
  Receive Date: 20110613
  Receipt Date: 20110530
  Transmission Date: 20111010
  Serious: Yes (Other)
  Sender: FDA-Public Use
  Company Number: PHHY2011BR48032

PATIENT
  Sex: Female
  Weight: 85 kg

DRUGS (11)
  1. PRE-SATE [Suspect]
     Indication: HYPERTENSION
     Dosage: 10 MG, QD
     Route: 048
  2. CRESTOR [Concomitant]
     Indication: BLOOD CHOLESTEROL
     Dosage: 10 MG, ONE TABLET AT NIGHT
     Route: 048
  3. SULPIRIDE [Concomitant]
  4. EXFORGE [Suspect]
     Indication: HYPERTENSION
     Dosage: 1 DF IN MORNING
     Route: 048
  5. HYGROTON [Concomitant]
     Indication: OEDEMA PERIPHERAL
     Dosage: 25 MG, QD
     Route: 048
  6. LEXOTAN [Concomitant]
     Dosage: 3 MG, ONE TABLET AT NIGHT
     Route: 048
  7. ACTOS [Concomitant]
     Indication: DIABETES MELLITUS
     Dosage: 15 MG, ONE TABLET IN MORNING
     Route: 048
  8. DIAMICRON [Concomitant]
     Indication: DIABETES MELLITUS
     Dosage: 30 MG,ONE TABLET IN THE MORNING
     Route: 048
  9. BROMAZEPAM [Concomitant]
     Dosage: 1 DF, IN THE MORNING
     Route: 048
  10. DIOVAN HCT [Suspect]
     Indication: HYPERTENSION
     Dosage: 320 MG VALS AND 12.5 MG HYDR, IN THE MORNING
     Route: 048
  11. SYNTHROID [Concomitant]
     Indication: THYROID DISORDER
     Dosage: 100 MG, ONE TABLET IN THE MORNING
     Route: 048

REACTIONS (3)
  - DIABETES MELLITUS [None]
  - OEDEMA PERIPHERAL [None]
  - FATIGUE [None]
